FAERS Safety Report 5864557-6 (Version None)
Quarter: 2008Q3

REPORT INFORMATION
  Report Type: 
  Country: None (occurrence: None)
  Receive Date: 20080829
  Receipt Date: 20080728
  Transmission Date: 20090109
  Serious: No
  Sender: FDA-Public Use
  Company Number: US-ABBOTT-08P-163-0462469-00

PATIENT
  Sex: Male
  Weight: 63.56 kg

DRUGS (5)
  1. SIMCOR [Suspect]
     Indication: BLOOD CHOLESTEROL
     Dosage: 500/20MG AT BED TIME
     Route: 048
     Dates: start: 20080605, end: 20080715
  2. ACETYLSALICYLIC ACID SRT [Concomitant]
     Indication: BLOOD CHOLESTEROL
     Dosage: 81MG, 1/2 HOUR BEFORE TAKING SIMCOR
  3. ATENOLOL [Concomitant]
     Indication: BLOOD PRESSURE
     Route: 048
  4. GENERIC QUINAPRIL [Concomitant]
     Indication: DRUG USE FOR UNKNOWN INDICATION
     Route: 048
  5. ALISKIREN [Concomitant]
     Indication: DRUG USE FOR UNKNOWN INDICATION
     Route: 048

REACTIONS (1)
  - PRURITUS [None]
